FAERS Safety Report 23364276 (Version 2)
Quarter: 2024Q2

REPORT INFORMATION
  Report Type: Report from Study
  Country: DE (occurrence: DE)
  Receive Date: 20240104
  Receipt Date: 20240409
  Transmission Date: 20240716
  Serious: Yes (Other)
  Sender: FDA-Public Use
  Company Number: DE-EMA-DD-20230904-7180171-093416

PATIENT
  Age: 31 Year
  Sex: Male

DRUGS (2)
  1. FILGRASTIM [Suspect]
     Active Substance: FILGRASTIM
     Indication: Stem cell donor
     Dosage: 3120 UG, IN TOTAL
     Route: 058
     Dates: start: 20130621
  2. FILGRASTIM [Suspect]
     Active Substance: FILGRASTIM
     Dosage: 3120 UG, IN TOTAL
     Route: 058
     Dates: start: 20130625

REACTIONS (3)
  - Femoroacetabular impingement [Recovered/Resolved with Sequelae]
  - Anal fissure [Recovered/Resolved]
  - Bone pain [Recovered/Resolved]

NARRATIVE: CASE EVENT DATE: 20130621
